FAERS Safety Report 23192629 (Version 1)
Quarter: 2023Q4

REPORT INFORMATION
  Report Type: Spontaneous
  Country: US (occurrence: US)
  Receive Date: 20231116
  Receipt Date: 20231116
  Transmission Date: 20240110
  Serious: No
  Sender: FDA-Public Use
  Company Number: US-SANOFI-00758145

PATIENT
  Age: 41 Year
  Sex: Female

DRUGS (2)
  1. ADMELOG [Suspect]
     Active Substance: INSULIN LISPRO
     Indication: Type 2 diabetes mellitus
     Dosage: 25-30U
     Route: 065
  2. ADMELOG [Suspect]
     Active Substance: INSULIN LISPRO
     Dosage: 25 IU, 3-4 TIMES A DAY

REACTIONS (1)
  - Product storage error [Unknown]
